FAERS Safety Report 9931662 (Version 1)
Quarter: 2014Q1

REPORT INFORMATION
  Report Type: Spontaneous
  Country: US (occurrence: None)
  Receive Date: 20140224
  Receipt Date: 20140224
  Transmission Date: 20141002
  Serious: Yes (Death)
  Sender: FDA-Public Use
  Company Number: NL01PV14.35261

PATIENT
  Age: 60 Year
  Sex: Female

DRUGS (7)
  1. UNKNOWN (ZOLPIDEM) TABLET [Suspect]
     Route: 048
  2. METFORMIN (METFORMIN) [Suspect]
     Dosage: UNK ORAL
     Route: 048
  3. ATENOLOL (ATENOLOL) [Suspect]
     Route: 048
  4. DIGOXIN (DIGOXIN) [Suspect]
     Route: 048
  5. HYDROCHLOROTHIAZIDE (+) LISINOPRIL [Suspect]
     Route: 048
  6. ONDANSETRON (ONDANSETRON) [Suspect]
     Route: 048
  7. PRAVASTATIN (PRAVASTATIN) [Suspect]
     Route: 048

REACTIONS (1)
  - Completed suicide [None]
